FAERS Safety Report 5054714-3 (Version None)
Quarter: 2006Q3

REPORT INFORMATION
  Report Type: 
  Country: None (occurrence: None)
  Receive Date: 20060719
  Receipt Date: 20060706
  Transmission Date: 20061208
  Serious: Yes (Hospitalization, Disabling)
  Sender: FDA-Public Use
  Company Number: US-BRISTOL-MYERS SQUIBB COMPANY-13434691

PATIENT
  Age: 65 Year
  Sex: Male
  Weight: 112 kg

DRUGS (4)
  1. TAXOL [Suspect]
     Indication: TONSIL CANCER
     Dates: start: 20051130, end: 20051130
  2. CARBOPLATIN [Suspect]
     Indication: TONSIL CANCER
     Dates: start: 20051130, end: 20051130
  3. COUMADIN [Suspect]
  4. CELEBREX [Concomitant]

REACTIONS (1)
  - CEREBROVASCULAR ACCIDENT [None]
